FAERS Safety Report 6163804-3 (Version None)
Quarter: 2009Q2

REPORT INFORMATION
  Report Type: 
  Country: None (occurrence: None)
  Receive Date: 20090420
  Receipt Date: 20090403
  Transmission Date: 20091009
  Serious: No
  Sender: FDA-Public Use
  Company Number: WAES 0904USA00937

PATIENT
  Sex: Female

DRUGS (1)
  1. TOP ZIMECTERIN GOLD UNK [Suspect]
     Indication: DRUG ADMINISTRATION ERROR
     Dosage: / PO
     Route: 048
     Dates: start: 20090403, end: 20090403

REACTIONS (2)
  - ACCIDENTAL EXPOSURE [None]
  - SENSORY DISTURBANCE [None]
